FAERS Safety Report 5724595-0 (Version None)
Quarter: 2008Q2

REPORT INFORMATION
  Report Type: 
  Country: None (occurrence: None)
  Receive Date: 20080428
  Receipt Date: 20080111
  Transmission Date: 20081010
  Serious: Yes (Other)
  Sender: FDA-Public Use
  Company Number: 79855

PATIENT
  Age: 78 Year
  Sex: Male

DRUGS (13)
  1. ALVESCO [Suspect]
     Indication: ASTHMA
     Dosage: DAILY DOSE 1 PUFF INHALATION, 2 DAY 1 PUFF
     Route: 055
     Dates: start: 20061214, end: 20071001
  2. ALVESCO [Suspect]
     Indication: ASTHMA
     Dosage: DAILY DOSE 1 PUFF INHALATION, 2 DAY 1 PUFF
     Route: 055
     Dates: start: 20071001
  3. DIABETA 5 MG (GLIBENCLAMIDE) [Concomitant]
  4. ALTACE [Concomitant]
  5. PERCOCET [Concomitant]
  6. METFORMIN 850 (METFORMIN) [Concomitant]
  7. SALBUTAMOL (SALBUTAMOL) [Concomitant]
  8. TYLENOL # 3 (CODEINE PHOSPHATE PARACETAMOL) [Concomitant]
  9. CIALIS [Concomitant]
  10. LOSEC (OMEPRAZOLE MAGNESIUM) [Concomitant]
  11. AVANDIA [Concomitant]
  12. LEVOTHYROXINE SODIUM [Concomitant]
  13. TOPICORT [Concomitant]

REACTIONS (1)
  - PHARYNGEAL CANDIDIASIS [None]
